FAERS Safety Report 7628912-6 (Version None)
Quarter: 2011Q3

REPORT INFORMATION
  Report Type: 
  Country: None (occurrence: None)
  Receive Date: 20110722
  Receipt Date: 20110715
  Transmission Date: 20111222
  Serious: Yes (Other)
  Sender: FDA-Public Use
  Company Number: GB-PFIZER INC-2011161657

PATIENT
  Age: 72 Year
  Sex: Female
  Weight: 60 kg

DRUGS (2)
  1. METRONIDAZOLE [Suspect]
     Indication: TOOTH INFECTION
     Dosage: 10 ML, 3X/DAY
     Route: 048
     Dates: start: 20110509, end: 20110516
  2. TRIMETHOPRIM [Concomitant]
     Indication: SINUSITIS
     Dosage: 200 MG, 2X/DAY
     Route: 048
     Dates: start: 20110509, end: 20110516

REACTIONS (16)
  - ABDOMINAL PAIN [None]
  - CONSTIPATION [None]
  - OCULAR HYPERAEMIA [None]
  - ARTHRALGIA [None]
  - FATIGUE [None]
  - DISTURBANCE IN ATTENTION [None]
  - NECK PAIN [None]
  - BALANCE DISORDER [None]
  - HAEMATOCHEZIA [None]
  - CONFUSIONAL STATE [None]
  - BACK PAIN [None]
  - VISION BLURRED [None]
  - DIPLOPIA [None]
  - HALLUCINATION [None]
  - DISORIENTATION [None]
  - PHOTOPSIA [None]
